FAERS Safety Report 4557060-7 (Version None)
Quarter: 2005Q1

REPORT INFORMATION
  Report Type: 
  Country: None (occurrence: None)
  Receive Date: 20050120
  Receipt Date: 20041220
  Transmission Date: 20050727
  Serious: Yes (Hospitalization)
  Sender: FDA-Public Use
  Company Number: US-GLAXOSMITHKLINE-A0538024A

PATIENT
  Age: 23 Year
  Sex: Female
  Weight: 76.8 kg

DRUGS (2)
  1. WELLBUTRIN [Suspect]
     Indication: SOCIAL PROBLEM
     Dosage: 150MG PER DAY
     Route: 048
  2. SYMBYAX [Suspect]

REACTIONS (4)
  - CONVULSION [None]
  - INCONTINENCE [None]
  - LOSS OF CONSCIOUSNESS [None]
  - SEXUAL DYSFUNCTION [None]
